FAERS Safety Report 5982239-7 (Version None)
Quarter: 2008Q4

REPORT INFORMATION
  Report Type: 
  Country: None (occurrence: None)
  Receive Date: 20081208
  Receipt Date: 20081127
  Transmission Date: 20090506
  Serious: Yes (Hospitalization)
  Sender: FDA-Public Use
  Company Number: TN-JNJFOC-20081200247

PATIENT
  Age: 35 Year
  Sex: Male

DRUGS (1)
  1. REMICADE [Suspect]
     Indication: ANKYLOSING SPONDYLITIS
     Route: 042

REACTIONS (3)
  - BONE MARROW FAILURE [None]
  - OESOPHAGEAL CANDIDIASIS [None]
  - PYREXIA [None]
